FAERS Safety Report 14850259 (Version 1)
Quarter: 2018Q2

REPORT INFORMATION
  Report Type: Report from Study
  Country: US (occurrence: US)
  Receive Date: 20180505
  Receipt Date: 20180505
  Transmission Date: 20180711
  Serious: No
  Sender: FDA-Public Use
  Company Number: PHEH2018US017408

PATIENT
  Sex: Female

DRUGS (1)
  1. GILENYA [Suspect]
     Active Substance: FINGOLIMOD HYDROCHLORIDE
     Indication: PRODUCT USED FOR UNKNOWN INDICATION
     Dosage: 0.5 MG, QD
     Route: 048

REACTIONS (7)
  - Anxiety [Unknown]
  - Palpitations [Unknown]
  - Paraesthesia [Unknown]
  - Pain in extremity [Unknown]
  - Migraine [Unknown]
  - Contusion [Unknown]
  - Hypoaesthesia [Unknown]
